FAERS Safety Report 9778457 (Version 1)
Quarter: 2013Q4

REPORT INFORMATION
  Report Type: Spontaneous
  Country: US (occurrence: None)
  Receive Date: 20131220
  Receipt Date: 20131220
  Transmission Date: 20140711
  Serious: No
  Sender: FDA-Public Use
  Company Number: None

PATIENT
  Age: 81 Year
  Sex: Female

DRUGS (1)
  1. STIVARGA 40MG BAYER [Suspect]
     Indication: COLON CANCER
     Dosage: 3 TABLETS (120 MG) DAILY ORAL
     Dates: start: 20131126

REACTIONS (10)
  - Blood pressure increased [None]
  - Haematemesis [None]
  - Epistaxis [None]
  - Headache [None]
  - Fall [None]
  - Fatigue [None]
  - Oropharyngeal pain [None]
  - Lip pain [None]
  - Eye pain [None]
  - Nasal congestion [None]
